FAERS Safety Report 4327781-X (Version None)
Quarter: 2004Q1

REPORT INFORMATION
  Report Type: 
  Country: None (occurrence: None)
  Receive Date: 20040331
  Receipt Date: 20040304
  Transmission Date: 20041129
  Serious: Yes (Death)
  Sender: FDA-Public Use
  Company Number: 200412843GDDC

PATIENT
  Age: 47 Year
  Sex: Male

DRUGS (8)
  1. HERBESSER ^TANABE^ [Suspect]
     Indication: CARDIAC FAILURE CHRONIC
     Route: 048
     Dates: start: 20030326, end: 20040117
  2. LASIX [Suspect]
     Indication: CARDIAC FAILURE CHRONIC
     Route: 048
     Dates: start: 20030326, end: 20040117
  3. BISOPROLOL FUMARATE [Suspect]
     Indication: CARDIAC FAILURE CHRONIC
     Route: 048
     Dates: start: 20030327, end: 20030423
  4. UNKNOWN DRUG [Suspect]
     Indication: CARDIAC FAILURE CHRONIC
     Route: 048
     Dates: start: 20030424, end: 20040117
  5. ASPIRIN [Suspect]
     Indication: PROPHYLAXIS
     Route: 048
     Dates: start: 20030326, end: 20040117
  6. ALDACTONE-A [Suspect]
     Indication: CARDIAC FAILURE CHRONIC
     Route: 048
     Dates: start: 20030326, end: 20040117
  7. NU-LOTAN [Suspect]
     Indication: CARDIAC FAILURE CHRONIC
     Route: 048
     Dates: start: 20030326, end: 20040117
  8. GENTACIN [Concomitant]
     Route: 048
     Dates: start: 20030507, end: 20030604

REACTIONS (7)
  - ACUTE MYOCARDIAL INFARCTION [None]
  - CARDIO-RESPIRATORY ARREST [None]
  - FALL [None]
  - SHOCK [None]
  - SUDDEN DEATH [None]
  - VENTRICULAR DYSFUNCTION [None]
  - VENTRICULAR FIBRILLATION [None]
